FAERS Safety Report 5056581-0 (Version None)
Quarter: 2006Q3

REPORT INFORMATION
  Report Type: 
  Country: None (occurrence: None)
  Receive Date: 20060720
  Receipt Date: 20060621
  Transmission Date: 20061208
  Serious: Yes (Hospitalization)
  Sender: FDA-Public Use
  Company Number: PHEH2006US09204

PATIENT
  Age: 27 Year
  Sex: Male
  Weight: 60.8 kg

DRUGS (2)
  1. EXJADE [Suspect]
     Dosage: 1500 MG, QD
     Route: 048
     Dates: start: 20060513, end: 20060501
  2. EXJADE [Suspect]
     Dosage: 1500 MG, QD
     Route: 048
     Dates: start: 20060531, end: 20060609

REACTIONS (2)
  - DEHYDRATION [None]
  - DIARRHOEA [None]
